FAERS Safety Report 26045085 (Version 1)
Quarter: 2025Q4

REPORT INFORMATION
  Report Type: Spontaneous
  Country: CN (occurrence: CN)
  Receive Date: 20251114
  Receipt Date: 20251114
  Transmission Date: 20260118
  Serious: Yes (Hospitalization, Other)
  Sender: DR REDDYS
  Company Number: None

PATIENT
  Age: 46 Year
  Sex: Male
  Weight: 76 kg

DRUGS (3)
  1. OLANZAPINE [Suspect]
     Active Substance: OLANZAPINE
     Indication: Craniocerebral injury
     Dosage: 10MG,QD
     Route: 048
     Dates: start: 20251014, end: 20251018
  2. UNSPECIFIED INGREDIENT [Suspect]
     Active Substance: UNSPECIFIED INGREDIENT
     Indication: Craniocerebral injury
     Dosage: 30MG,TID
     Route: 048
     Dates: start: 20251014, end: 20251018
  3. Citicoline sodium tablets [Concomitant]
     Indication: Craniocerebral injury
     Dosage: 0.2G,TID
     Route: 048
     Dates: start: 20251014, end: 20251018

REACTIONS (1)
  - Drug eruption [Recovering/Resolving]

NARRATIVE: CASE EVENT DATE: 20251018
